FAERS Safety Report 4462111-4 (Version None)
Quarter: 2004Q3

REPORT INFORMATION
  Report Type: 
  Country: None (occurrence: None)
  Receive Date: 20040924
  Receipt Date: 20040924
  Transmission Date: 20050211
  Serious: No
  Sender: FDA-Public Use
  Company Number: None

PATIENT
  Sex: Female

DRUGS (27)
  1. AVINZA [Suspect]
     Indication: PAIN
     Dosage: 60MG QD PO
     Route: 048
  2. NEURONTIN [Concomitant]
  3. ACTONEL [Concomitant]
  4. CARDIZEM CD [Concomitant]
  5. MAG-OX [Concomitant]
  6. MULTI-VITAMIN [Concomitant]
  7. RHINOCORT [Concomitant]
  8. HYDROCHLOTHIAZIDE [Concomitant]
  9. PREDNISONE [Concomitant]
  10. GUAIFENESIN [Concomitant]
  11. ALLEGRA [Concomitant]
  12. LASIX [Concomitant]
  13. K-DUR 10 [Concomitant]
  14. ZANTAC [Concomitant]
  15. NASONEX [Concomitant]
  16. OSCAL [Concomitant]
  17. OCEAN SPRAY [Concomitant]
  18. ATARAX [Concomitant]
  19. KLONOPIN [Concomitant]
  20. LEVAQUIN [Concomitant]
  21. PROZAC [Concomitant]
  22. ATIVAN [Concomitant]
  23. LORTAB [Concomitant]
  24. DUONEB [Concomitant]
  25. ADVAIR DISKUS 100/50 [Concomitant]
  26. NOVOLIN R [Concomitant]
  27. AMBIEN [Concomitant]

REACTIONS (4)
  - CHRONIC OBSTRUCTIVE AIRWAYS DISEASE [None]
  - FATIGUE [None]
  - HEART RATE INCREASED [None]
  - RESPIRATORY FAILURE [None]
